FAERS Safety Report 4592757-4 (Version None)
Quarter: 2005Q1

REPORT INFORMATION
  Report Type: 
  Country: None (occurrence: None)
  Receive Date: 20050228
  Receipt Date: 20040812
  Transmission Date: 20050727
  Serious: Yes (Death, Hospitalization)
  Sender: FDA-Public Use
  Company Number: US-SOLVAY-00204002739

PATIENT
  Age: 18935 Day
  Sex: Male
  Weight: 63.503 kg

DRUGS (34)
  1. MORPHINE SULFATE [Concomitant]
     Indication: ILL-DEFINED DISORDER
     Dosage: DAILY DOSE: 15 MG. FREQUENCY:AS NEEDED
     Route: 065
     Dates: start: 20030713, end: 20030905
  2. MARINOL [Suspect]
     Indication: ILL-DEFINED DISORDER
     Dosage: DAILY DOSE: UNK.
     Route: 048
  3. ARANESP [Suspect]
     Indication: ANAEMIA OF MALIGNANT DISEASE
     Dosage: DAILY DOSE: 200 IU.
     Route: 058
     Dates: start: 20030821
  4. CHLORPROMAZINE [Concomitant]
     Indication: ILL-DEFINED DISORDER
     Dosage: DAILY DOSE: 25 MG. FREQUENCY:AS NEEDED
     Route: 065
     Dates: start: 20030703
  5. KYTRIL [Suspect]
     Indication: ILL-DEFINED DISORDER
     Dosage: DAILY DOSE: 1 MG.
     Route: 042
     Dates: start: 20030828, end: 20030828
  6. OXYCODONE HCL [Concomitant]
     Indication: ILL-DEFINED DISORDER
     Dosage: DAILY DOSE: 30 MG.
     Route: 048
     Dates: start: 20030901
  7. OXYCONTIN [Suspect]
     Indication: ILL-DEFINED DISORDER
     Dosage: DAILY DOSE: 40 MG.
     Route: 048
     Dates: start: 20030806, end: 20030905
  8. PROGRAF [Concomitant]
     Indication: ILL-DEFINED DISORDER
     Dosage: DAILY DOSE: 4 MG.
     Route: 065
     Dates: start: 20030103
  9. PROGRAF [Concomitant]
     Dosage: DAILY DOSE: 8 MG.
     Route: 065
     Dates: start: 20030103
  10. NEURONTIN [Suspect]
     Indication: ILL-DEFINED DISORDER
     Dosage: DAILY DOSE: UNK.
     Route: 048
  11. PROTONIX [Concomitant]
     Indication: ILL-DEFINED DISORDER
     Dosage: DAILY DOSE: 40 MG.
     Route: 065
     Dates: start: 20030910
  12. ARICEPT [Suspect]
     Indication: ILL-DEFINED DISORDER
     Dosage: DAILY DOSE: UNK.
     Route: 048
  13. PRANDIN [Concomitant]
     Indication: ILL-DEFINED DISORDER
     Dosage: DAILY DOSE: 0.1 MG.
     Route: 048
     Dates: start: 20030821
  14. ZOLOFT [Concomitant]
     Indication: ILL-DEFINED DISORDER
     Dosage: DAILY DOSE: 100 MG.
     Route: 048
     Dates: start: 20020501
  15. GLIPIZIDE [Concomitant]
     Indication: ILL-DEFINED DISORDER
     Dosage: DAILY DOSE: 500 MG.
     Route: 048
     Dates: start: 20030115
  16. PROCARDIA [Concomitant]
     Indication: ILL-DEFINED DISORDER
     Dosage: DAILY DOSE: 120 MG.
     Route: 048
     Dates: start: 20030115
  17. MAGNESIUM [Concomitant]
     Indication: ILL-DEFINED DISORDER
     Dosage: DAILY DOSE: 800 MG.
     Route: 048
     Dates: start: 20030103
  18. LEVAQUIN [Concomitant]
     Indication: ILL-DEFINED DISORDER
     Dosage: DAILY DOSE: 500 MG.
     Route: 048
     Dates: start: 20030903, end: 20030910
  19. PENTAMIDINE [Concomitant]
     Indication: ILL-DEFINED DISORDER
     Dosage: DAILY DOSE: UNK.
     Route: 055
     Dates: start: 20030103
  20. PERI-COLACE [Concomitant]
     Indication: ILL-DEFINED DISORDER
     Dosage: DAILY DOSE: 2 DF.
     Route: 065
     Dates: start: 20030115
  21. DULCOLAX [Concomitant]
     Indication: ILL-DEFINED DISORDER
     Dosage: DAILY DOSE: 5 MG. FREQUENCY:AS NEEDED
     Route: 054
     Dates: start: 20030115
  22. ASPIRIN [Concomitant]
     Indication: ILL-DEFINED DISORDER
     Dosage: DAILY DOSE: 81 MG.
     Route: 048
     Dates: start: 20030115
  23. LASIX [Concomitant]
     Indication: ILL-DEFINED DISORDER
     Dosage: DAILY DOSE: 40 MG. FREQUENCY:ONCE
     Route: 042
     Dates: start: 20030828, end: 20030828
  24. LEUKINE [Concomitant]
     Indication: ILL-DEFINED DISORDER
     Dosage: DAILY DOSE: 500 MG.
     Route: 058
     Dates: start: 20030829, end: 20030904
  25. DEXAMETHASONE [Concomitant]
     Indication: ILL-DEFINED DISORDER
     Dosage: DAILY DOSE: 10 MG. FREQUENCY:ONCE
     Route: 042
     Dates: start: 20030828, end: 20030828
  26. ADRIAMYCIN PFS [Concomitant]
     Indication: ILL-DEFINED DISORDER
     Dosage: DAILY DOSE: UNK.
     Route: 058
  27. CISPLATIN [Concomitant]
     Indication: ILL-DEFINED DISORDER
     Dosage: DAILY DOSE: UNK.
     Route: 058
  28. SENECOT [Concomitant]
     Indication: ILL-DEFINED DISORDER
     Dosage: DAILY DOSE: UNK.
     Route: 065
  29. INDERAL [Concomitant]
     Indication: ILL-DEFINED DISORDER
     Dosage: DAILY DOSE: UNK.
     Route: 048
  30. MULTI-VITAMINS [Concomitant]
     Indication: ILL-DEFINED DISORDER
     Dosage: DAILY DOSE: UNK.
     Route: 065
  31. INSULIN [Concomitant]
     Indication: ILL-DEFINED DISORDER
     Dosage: DAILY DOSE: UNK.
     Route: 065
  32. ALDACTONE [Concomitant]
     Indication: ILL-DEFINED DISORDER
     Dosage: DAILY DOSE: UNK.
     Route: 048
  33. MEGACE [Concomitant]
     Indication: ILL-DEFINED DISORDER
     Dosage: DAILY DOSE: UNK.
     Route: 048
  34. DARBEPOETIN ALFA [Concomitant]
     Indication: ILL-DEFINED DISORDER
     Dosage: DAILY DOSE:  UNKNOWN
     Route: 058
     Dates: start: 20030821, end: 20031115

REACTIONS (10)
  - ANAEMIA [None]
  - CONFUSIONAL STATE [None]
  - CONVULSION [None]
  - FACE INJURY [None]
  - FALL [None]
  - HEPATIC NEOPLASM MALIGNANT [None]
  - MENTAL STATUS CHANGES [None]
  - NAUSEA [None]
  - PANCYTOPENIA [None]
  - VOMITING [None]
